FAERS Safety Report 4344308-7 (Version None)
Quarter: 2004Q2

REPORT INFORMATION
  Report Type: 
  Country: None (occurrence: None)
  Receive Date: 20040422
  Receipt Date: 20040412
  Transmission Date: 20050107
  Serious: Yes (Other)
  Sender: FDA-Public Use
  Company Number: JP-BRISTOL-MYERS SQUIBB COMPANY-12558045

PATIENT
  Age: 46 Year
  Sex: Male

DRUGS (3)
  1. CISPLATIN [Suspect]
     Indication: T-CELL TYPE ACUTE LEUKAEMIA
  2. ETOPOSIDE [Suspect]
     Indication: T-CELL TYPE ACUTE LEUKAEMIA
  3. BLEOMYCIN [Suspect]
     Indication: T-CELL TYPE ACUTE LEUKAEMIA

REACTIONS (3)
  - RENAL FAILURE ACUTE [None]
  - SEPTIC SHOCK [None]
  - TUMOUR LYSIS SYNDROME [None]
